FAERS Safety Report 13763585 (Version 3)
Quarter: 2019Q4

REPORT INFORMATION
  Report Type: Spontaneous
  Country: US (occurrence: US)
  Receive Date: 20170718
  Receipt Date: 20191009
  Transmission Date: 20200122
  Serious: Yes (Other)
  Sender: FDA-Public Use
  Company Number: US-SA-2017SA127615

PATIENT
  Age: 70 Year
  Sex: Female

DRUGS (2)
  1. CERDELGA [Suspect]
     Active Substance: ELIGLUSTAT
     Dosage: 84 MG,BID
     Route: 048
     Dates: start: 2015
  2. CEREZYME [Suspect]
     Active Substance: IMIGLUCERASE
     Dosage: UNK UNK,UNK
     Route: 041
     Dates: start: 2011, end: 2015

REACTIONS (2)
  - Chromosomal deletion [Not Recovered/Not Resolved]
  - Marginal zone lymphoma [Not Recovered/Not Resolved]

NARRATIVE: CASE EVENT DATE: 2011
